FAERS Safety Report 5649216-7 (Version None)
Quarter: 2008Q1

REPORT INFORMATION
  Report Type: 
  Country: None (occurrence: None)
  Receive Date: 20080304
  Receipt Date: 20071126
  Transmission Date: 20080703
  Serious: No
  Sender: FDA-Public Use
  Company Number: US-BAYER-200715661NA

PATIENT
  Age: 56 Year
  Sex: Female
  Weight: 58 kg

DRUGS (2)
  1. MAGNEVIST [Suspect]
     Indication: NUCLEAR MAGNETIC RESONANCE IMAGING
     Dosage: TOTAL DAILY DOSE: 12 ML  UNIT DOSE: 12 ML
     Route: 042
     Dates: start: 20071105, end: 20071105
  2. FEMARA [Concomitant]

REACTIONS (3)
  - EAR PRURITUS [None]
  - ORAL PRURITUS [None]
  - PRURITUS [None]
